FAERS Safety Report 7705471-0 (Version None)
Quarter: 2011Q3

REPORT INFORMATION
  Report Type: 
  Country: None (occurrence: None)
  Receive Date: 20110824
  Receipt Date: 20110815
  Transmission Date: 20111222
  Serious: Yes (Other)
  Sender: FDA-Public Use
  Company Number: US-ASTELLAS-2011US003996

PATIENT
  Sex: Male

DRUGS (1)
  1. TARCEVA [Suspect]
     Indication: PRODUCT USED FOR UNKNOWN INDICATION
     Dosage: 150-300 MG, UID/QD
     Route: 065
     Dates: start: 20101101

REACTIONS (3)
  - PULMONARY EMBOLISM [None]
  - OVERDOSE [None]
  - DEEP VEIN THROMBOSIS [None]
